FAERS Safety Report 8915839 (Version 1)
Quarter: 2012Q4

REPORT INFORMATION
  Report Type: 
  Country: US (occurrence: US)
  Receive Date: 20121119
  Receipt Date: 20121119
  Transmission Date: 20130627
  Serious: Yes (Life-Threatening, Disabling)
  Sender: FDA-Public Use
  Company Number: US-009507513-0504USA02622

PATIENT

DRUGS (4)
  1. FOSAMAX [Suspect]
     Indication: OSTEOPOROSIS
     Dosage: 70 mg, QW
     Route: 048
     Dates: start: 200001, end: 200503
  2. CALCIUM (UNSPECIFIED) [Concomitant]
  3. METICORTEN [Concomitant]
  4. FOSAMAX D [Suspect]
     Route: 048
     Dates: end: 200608

REACTIONS (25)
  - Bone density decreased [Recovered/Resolved]
  - Bone density decreased [Not Recovered/Not Resolved]
  - Arthralgia [Not Recovered/Not Resolved]
  - Myalgia [Not Recovered/Not Resolved]
  - Gingival recession [Not Recovered/Not Resolved]
  - Anxiety [Not Recovered/Not Resolved]
  - Gingival swelling [Not Recovered/Not Resolved]
  - Loose tooth [Not Recovered/Not Resolved]
  - Oral disorder [Unknown]
  - Stress [Not Recovered/Not Resolved]
  - Tooth disorder [Not Recovered/Not Resolved]
  - Tooth disorder [Not Recovered/Not Resolved]
  - Weight decreased [Not Recovered/Not Resolved]
  - Gingival pruritus [Not Recovered/Not Resolved]
  - Pain in jaw [Unknown]
  - Tooth disorder [Unknown]
  - Eating disorder [Unknown]
  - Alopecia [Unknown]
  - Bone disorder [Unknown]
  - Dehydration [Unknown]
  - Vomiting [Unknown]
  - Contusion [Recovered/Resolved]
  - Dysmorphism [Recovered/Resolved]
  - Medical device removal [Unknown]
  - Dental implantation [Unknown]
